FAERS Safety Report 14554115 (Version 1)
Quarter: 2018Q1

REPORT INFORMATION
  Report Type: Spontaneous
  Country: FR (occurrence: FR)
  Receive Date: 20180220
  Receipt Date: 20180220
  Transmission Date: 20180509
  Serious: Yes (Hospitalization)
  Sender: FDA-Public Use
  Company Number: FR-TEVA-2018-FR-857348

PATIENT
  Age: 84 Year
  Sex: Female
  Weight: 65.5 kg

DRUGS (6)
  1. PREVISCAN 20 MG [Concomitant]
     Active Substance: FLUINDIONE
     Indication: PULMONARY EMBOLISM
     Dosage: 10 MILLIGRAM DAILY;
     Route: 048
  2. LORMETAZEPAM [Suspect]
     Active Substance: LORMETAZEPAM
     Indication: ANXIETY
     Dosage: 2 MILLIGRAM DAILY;
     Route: 048
     Dates: end: 20170621
  3. LORAZEPAM. [Concomitant]
     Active Substance: LORAZEPAM
     Indication: ANXIETY
     Dosage: 4 MILLIGRAM DAILY;
     Route: 048
  4. SERTRALINE [Suspect]
     Active Substance: SERTRALINE HYDROCHLORIDE
     Indication: DEPRESSION
     Dosage: 50 MILLIGRAM DAILY;
     Route: 048
     Dates: start: 201703, end: 20170621
  5. PERINDOPRIL [Suspect]
     Active Substance: PERINDOPRIL
     Dosage: 2 MILLIGRAM DAILY;
     Route: 048
  6. FOSFOMYCINE [Concomitant]
     Active Substance: FOSFOMYCIN
     Indication: PROPHYLAXIS
     Route: 048

REACTIONS (2)
  - Hyponatraemia [Recovered/Resolved]
  - General physical health deterioration [Recovering/Resolving]

NARRATIVE: CASE EVENT DATE: 201705
